FAERS Safety Report 9802959 (Version 1)
Quarter: 2014Q1

REPORT INFORMATION
  Report Type: Spontaneous
  Country: FR (occurrence: FR)
  Receive Date: 20140108
  Receipt Date: 20140108
  Transmission Date: 20141002
  Serious: Yes (Hospitalization)
  Sender: FDA-Public Use
  Company Number: FR-BAYER-2014-001868

PATIENT
  Age: 21 Year
  Sex: Female

DRUGS (3)
  1. QLAIRA [Suspect]
     Dosage: 1 DF, QD
     Route: 048
     Dates: start: 20130904, end: 20131121
  2. VENLAFAXINE [Suspect]
     Dosage: 75 MG, QD
     Route: 048
     Dates: start: 20130619, end: 20131121
  3. CURACNE [Suspect]
     Dosage: 30 MG, QD
     Route: 048
     Dates: start: 20130918, end: 20131121

REACTIONS (3)
  - Vision blurred [Recovered/Resolved]
  - Headache [Recovered/Resolved]
  - Mydriasis [Recovered/Resolved]
